FAERS Safety Report 13910757 (Version 5)
Quarter: 2018Q1

REPORT INFORMATION
  Report Type: Report from Study
  Country: JP (occurrence: JP)
  Receive Date: 20170828
  Receipt Date: 20180307
  Transmission Date: 20180508
  Serious: Yes (Death, Life-Threatening, Hospitalization, Disabling, Other)
  Sender: FDA-Public Use
  Company Number: JP-PFIZER INC-2017363716

PATIENT
  Age: 60 Year
  Sex: Female
  Weight: 52.4 kg

DRUGS (55)
  1. URSODEOXYCHOLIC ACID [Concomitant]
     Active Substance: URSODIOL
     Indication: PROPHYLAXIS
     Dosage: UNK
     Route: 048
     Dates: start: 20170106, end: 20170710
  2. ALKERAN [Concomitant]
     Active Substance: MELPHALAN
     Indication: NEOPLASM MALIGNANT
     Dosage: UNK
     Route: 041
     Dates: start: 20170628, end: 20170629
  3. TAZOPIPE [Concomitant]
     Active Substance: PIPERACILLIN SODIUM\TAZOBACTAM SODIUM
     Indication: INFECTION
     Dosage: UNK
     Route: 041
     Dates: start: 20170628, end: 20170703
  4. VENOGLOBULIN [Concomitant]
     Active Substance: HUMAN IMMUNOGLOBULIN G
     Indication: GLOBULIN
     Dosage: UNK
     Route: 041
     Dates: start: 20170704, end: 20170706
  5. ATARAX-P /00058402/ [Concomitant]
     Active Substance: HYDROXYZINE HYDROCHLORIDE
     Indication: ALLERGY PROPHYLAXIS
     Dosage: UNK UNK, AS NEEDED
     Route: 042
     Dates: start: 20170622, end: 20170707
  6. VICCLOX [Concomitant]
     Active Substance: ACYCLOVIR SODIUM
     Indication: HERPES SIMPLEX
  7. URSODEOXYCHOLIC ACID [Concomitant]
     Active Substance: URSODIOL
     Indication: VENOOCCLUSIVE LIVER DISEASE
  8. MIYA-BM [Concomitant]
     Active Substance: CLOSTRIDIUM BUTYRICUM SPORES STRAIN M-55
     Indication: DIARRHOEA
     Dosage: UNK
     Route: 048
     Dates: start: 20170623, end: 20170710
  9. CUBICIN [Concomitant]
     Active Substance: DAPTOMYCIN
     Indication: INFECTION
     Dosage: UNK
     Route: 041
     Dates: start: 20170703, end: 20170707
  10. SOLDACTONE [Concomitant]
     Active Substance: CANRENOATE POTASSIUM
     Indication: OEDEMA
     Dosage: UNK UNK, AS NEEDED
     Route: 042
     Dates: start: 20170622, end: 20170707
  11. MYCOPHENOLATE MOFETIL. [Concomitant]
     Active Substance: MYCOPHENOLATE MOFETIL
     Indication: PROPHYLAXIS
     Dosage: 1000 MG, DAILY
     Route: 048
     Dates: start: 20170629, end: 20170710
  12. TRAZENTA [Concomitant]
     Active Substance: LINAGLIPTIN
     Indication: DIABETES MELLITUS MANAGEMENT
     Dosage: UNK
     Route: 048
     Dates: start: 20161225, end: 20170709
  13. DAIPHEN [Concomitant]
     Active Substance: SULFAMETHOXAZOLE\TRIMETHOPRIM
     Indication: PROPHYLAXIS
     Dosage: 1 DF, DAILY
     Route: 048
     Dates: start: 20161114, end: 20170629
  14. PROGRAF [Concomitant]
     Active Substance: TACROLIMUS\TACROLIMUS ANHYDROUS
     Indication: PROPHYLAXIS
  15. FRAGMIN [Concomitant]
     Active Substance: DALTEPARIN SODIUM
     Indication: PROPHYLAXIS
     Dosage: UNK
     Route: 041
     Dates: start: 20170623, end: 20170707
  16. FRAGMIN [Concomitant]
     Active Substance: DALTEPARIN SODIUM
     Indication: VENOOCCLUSIVE LIVER DISEASE
  17. OXIFAST [Concomitant]
     Active Substance: OXYCODONE
     Indication: ANALGESIC THERAPY
     Dosage: 10 MG, DAILY
     Route: 042
     Dates: start: 20170701, end: 20170709
  18. ELNEOPA NO.1 [Concomitant]
     Dosage: UNK UNK, AS NEEDED
     Route: 041
     Dates: start: 20170622, end: 20170707
  19. ELNEOPA NO.2 [Concomitant]
     Active Substance: AMINO ACIDS\CARBOHYDRATES\ELECTROLYTES NOS\VITAMINS
     Dosage: UNK UNK, AS NEEDED
     Route: 041
     Dates: start: 20170622, end: 20170707
  20. NEXIUM [Concomitant]
     Active Substance: ESOMEPRAZOLE MAGNESIUM
     Indication: GASTRIC ULCER
     Dosage: 20 MG, DAILY
     Route: 048
     Dates: start: 20161116, end: 20170629
  21. LORAZEPAM. [Concomitant]
     Active Substance: LORAZEPAM
     Indication: CONVULSION PROPHYLAXIS
     Dosage: UNK
     Route: 048
     Dates: start: 20170622, end: 20170627
  22. HALIZON [Concomitant]
     Active Substance: AMPHOTERICIN B
     Indication: ORAL CANDIDIASIS
  23. INOVAN /00360702/ [Concomitant]
     Active Substance: DOPAMINE HYDROCHLORIDE
     Indication: SHOCK
     Dosage: UNK
     Route: 042
     Dates: start: 20170705
  24. FUROSEMIDE. [Concomitant]
     Active Substance: FUROSEMIDE
     Indication: OEDEMA
     Dosage: UNK UNK, AS NEEDED
     Route: 042
     Dates: start: 20170622, end: 20170707
  25. TACROLIMUS. [Suspect]
     Active Substance: TACROLIMUS
     Indication: IMMUNOSUPPRESSANT DRUG THERAPY
     Dosage: 1 MG, DAILY
     Dates: start: 20170626, end: 20170707
  26. MYCOPHENOLATE MOFETIL. [Concomitant]
     Active Substance: MYCOPHENOLATE MOFETIL
     Indication: GRAFT VERSUS HOST DISEASE
  27. CIPROFLOXACIN. [Concomitant]
     Active Substance: CIPROFLOXACIN
     Indication: INFECTION
  28. EMEND [Concomitant]
     Active Substance: APREPITANT
     Indication: PROPHYLAXIS OF NAUSEA AND VOMITING
     Dosage: UNK
     Route: 048
     Dates: start: 20170623, end: 20170625
  29. POLAPREZINC [Concomitant]
     Active Substance: POLAPREZINC
     Indication: GASTROINTESTINAL DISORDER
     Dosage: UNK
     Route: 048
     Dates: start: 20170621, end: 20170629
  30. GRAN [Concomitant]
     Active Substance: FILGRASTIM
     Indication: NEUTROPENIA
     Dosage: UNK
     Route: 042
     Dates: start: 20170705
  31. HUMULIN R [Concomitant]
     Active Substance: INSULIN HUMAN
     Indication: HYPERGLYCAEMIA
     Dosage: UNK UNK, AS NEEDED
     Route: 042
     Dates: start: 20170622, end: 20170707
  32. VICCLOX [Concomitant]
     Active Substance: ACYCLOVIR SODIUM
     Indication: PROPHYLAXIS
     Dosage: UNK
     Route: 048
     Dates: start: 20170120, end: 20170629
  33. VICCLOX [Concomitant]
     Active Substance: ACYCLOVIR SODIUM
     Indication: HERPES SIMPLEX
  34. EXJADE [Concomitant]
     Active Substance: DEFERASIROX
     Indication: IRON OVERLOAD
     Dosage: UNK
     Route: 048
     Dates: start: 20170517, end: 20170627
  35. BICANATE [Concomitant]
     Dosage: UNK UNK, AS NEEDED
     Route: 041
     Dates: start: 20170622, end: 20170707
  36. LINTON /00008702/ [Concomitant]
     Active Substance: BUTYLSCOPOLAMINE BROMIDE
     Indication: DELIRIUM
     Dosage: UNK UNK, AS NEEDED
     Route: 042
     Dates: start: 20170622, end: 20170707
  37. VFEND [Suspect]
     Active Substance: VORICONAZOLE
     Indication: ANTIFUNGAL PROPHYLAXIS
     Dosage: 200 MG, 2X/DAY
     Route: 048
     Dates: start: 20170623, end: 20170710
  38. BUSULFEX [Suspect]
     Active Substance: BUSULFAN
     Indication: NEOPLASM MALIGNANT
     Dosage: UNK
     Route: 041
     Dates: start: 20170623, end: 20170626
  39. VICCLOX [Concomitant]
     Active Substance: ACYCLOVIR SODIUM
     Indication: PROPHYLAXIS
     Dosage: UNK
     Route: 041
     Dates: start: 20170630
  40. AMLODIPINE [Concomitant]
     Active Substance: AMLODIPINE BESYLATE
     Indication: BLOOD PRESSURE INCREASED
     Dosage: UNK
     Route: 048
     Dates: start: 20170201, end: 20170709
  41. TAKEPRON [Concomitant]
     Active Substance: LANSOPRAZOLE
     Indication: GASTRIC ULCER
     Dosage: 30 MG, DAILY
     Route: 042
     Dates: start: 20170701
  42. CIPROFLOXACIN. [Concomitant]
     Active Substance: CIPROFLOXACIN
     Indication: PROPHYLAXIS
     Dosage: UNK
     Route: 048
     Dates: start: 20161116, end: 20170629
  43. ARCRANE [Concomitant]
     Indication: GASTROINTESTINAL DISORDER
     Dosage: UNK
     Route: 048
     Dates: start: 20170621, end: 20170629
  44. ALOXI [Concomitant]
     Active Substance: PALONOSETRON HYDROCHLORIDE
     Indication: PROPHYLAXIS OF NAUSEA AND VOMITING
     Dosage: UNK
     Route: 041
     Dates: start: 20170623, end: 20170623
  45. DEXART [Concomitant]
     Active Substance: DEXAMETHASONE SODIUM PHOSPHATE
     Indication: PROPHYLAXIS OF NAUSEA AND VOMITING
     Dosage: 8 MG, DAILY
     Route: 041
     Dates: start: 20170623, end: 20170628
  46. MEROPENEM. [Concomitant]
     Active Substance: MEROPENEM
     Indication: INFECTION
     Dosage: UNK
     Route: 041
     Dates: start: 20170703, end: 20170707
  47. SOLDEM 3A [Concomitant]
     Active Substance: CARBOHYDRATES\POTASSIUM CHLORIDE\SODIUM CHLORIDE\SODIUM LACTATE
     Dosage: UNK UNK, AS NEEDED
     Route: 041
     Dates: start: 20170622, end: 20170707
  48. MAGNESIUM SULFATE. [Concomitant]
     Active Substance: MAGNESIUM SULFATE
     Indication: HYPOMAGNESAEMIA
     Dosage: UNK UNK, AS NEEDED
     Route: 042
     Dates: start: 20170622, end: 20170707
  49. ALBUMIN [Concomitant]
     Active Substance: ALBUMIN HUMAN
     Indication: HYPOALBUMINAEMIA
     Dosage: UNK UNK, AS NEEDED
     Route: 042
     Dates: start: 20170622, end: 20170707
  50. NONTHRON [Concomitant]
     Dosage: UNK UNK, AS NEEDED
     Route: 042
     Dates: start: 20170622, end: 20170707
  51. VICCLOX [Concomitant]
     Active Substance: ACYCLOVIR SODIUM
     Indication: VARICELLA ZOSTER VIRUS INFECTION
  52. VICCLOX [Concomitant]
     Active Substance: ACYCLOVIR SODIUM
     Indication: VARICELLA ZOSTER VIRUS INFECTION
  53. HALIZON [Concomitant]
     Active Substance: AMPHOTERICIN B
     Indication: PROPHYLAXIS
     Dosage: 4 ML, DAILY
     Route: 048
     Dates: start: 20170627, end: 20170709
  54. FLUDARA [Concomitant]
     Active Substance: FLUDARABINE PHOSPHATE
     Indication: NEOPLASM MALIGNANT
     Dosage: UNK
     Route: 041
     Dates: start: 20170623, end: 20170628
  55. PROGRAF [Concomitant]
     Active Substance: TACROLIMUS\TACROLIMUS ANHYDROUS
     Indication: GRAFT VERSUS HOST DISEASE
     Dosage: UNK
     Route: 042
     Dates: start: 20170629, end: 20170707

REACTIONS (3)
  - Pneumonia [Fatal]
  - Venoocclusive liver disease [Not Recovered/Not Resolved]
  - Shock [Not Recovered/Not Resolved]

NARRATIVE: CASE EVENT DATE: 20170705
